FAERS Safety Report 10258453 (Version 1)
Quarter: 2014Q2

REPORT INFORMATION
  Report Type: Spontaneous
  Country: AT (occurrence: AT)
  Receive Date: 20140625
  Receipt Date: 20140625
  Transmission Date: 20141212
  Serious: Yes (Other)
  Sender: FDA-Public Use
  Company Number: AT-ENDO PHARMACEUTICALS INC.-AVEE20140102

PATIENT
  Sex: Male

DRUGS (1)
  1. AVEED [Suspect]
     Indication: PRODUCT USED FOR UNKNOWN INDICATION
     Dosage: UNKNOWN
     Route: 030

REACTIONS (2)
  - Throat irritation [Unknown]
  - Dyspnoea [Unknown]
